FAERS Safety Report 6543799-0 (Version None)
Quarter: 2010Q1

REPORT INFORMATION
  Report Type: 
  Country: None (occurrence: None)
  Receive Date: 20100120
  Receipt Date: 20100115
  Transmission Date: 20100710
  Serious: Yes (Other)
  Sender: FDA-Public Use
  Company Number: US-RB-000864-10

PATIENT
  Age: 57 Year
  Sex: Male

DRUGS (4)
  1. SUBOXONE [Suspect]
     Route: 060
     Dates: start: 20100107
  2. NEURONTIN [Concomitant]
     Indication: PAIN
     Route: 065
  3. XANAX [Suspect]
     Indication: DEPRESSION
     Dosage: DOSING DETAILS UNKNOWN
     Route: 048
     Dates: end: 20100107
  4. XANAX [Suspect]
     Indication: ANXIETY
     Dosage: DOSING DETAILS UNKNOWN
     Route: 048
     Dates: end: 20100107

REACTIONS (4)
  - DYSPNOEA [None]
  - HALLUCINATION [None]
  - HYPERHIDROSIS [None]
  - VOMITING [None]
